FAERS Safety Report 8965636 (Version 1)
Quarter: 2012Q4

REPORT INFORMATION
  Report Type: Spontaneous
  Country: US (occurrence: None)
  Receive Date: 20121204
  Receipt Date: 20121204
  Transmission Date: 20130627
  Serious: Yes (Hospitalization)
  Sender: FDA-Public Use
  Company Number: 0233959

PATIENT
  Age: 57 Year
  Sex: Female

DRUGS (5)
  1. TACHOSIL [Suspect]
     Indication: PROPHYLAXIS
     Dosage: 1 Dosage Forms
     Dates: start: 20121019, end: 20121019
  2. REMINARON (GABEXATE MESILATE) [Concomitant]
  3. INOVAN (DOPAMINE HYDROCHLORIDE) [Concomitant]
  4. WYSTAL (CEFOPERAZONE) [Concomitant]
  5. CREXANE (ALL OTHER THERAPEUTIC PRODUCTS) [Concomitant]

REACTIONS (1)
  - Gastrointestinal haemorrhage [None]
